FAERS Safety Report 9888485 (Version 2)
Quarter: 2014Q2

REPORT INFORMATION
  Report Type: Spontaneous
  Country: JP (occurrence: JP)
  Receive Date: 20140211
  Receipt Date: 20140401
  Transmission Date: 20141212
  Serious: Yes (Hospitalization)
  Sender: FDA-Public Use
  Company Number: JP-EISAI INC-E2090-03110-SPO-JP

PATIENT
  Age: 82 Year
  Sex: Male

DRUGS (4)
  1. EXCEGRAN [Suspect]
     Indication: EPILEPSY
     Route: 048
     Dates: start: 20131202, end: 20131205
  2. EXCEGRAN [Suspect]
     Route: 048
     Dates: start: 20131206, end: 20131209
  3. EXCEGRAN [Suspect]
     Route: 048
     Dates: start: 20131210, end: 20131227
  4. HARNAL D [Concomitant]
     Route: 048

REACTIONS (1)
  - Drug reaction with eosinophilia and systemic symptoms [Not Recovered/Not Resolved]
